FAERS Safety Report 8247087-6 (Version None)
Quarter: 2012Q1

REPORT INFORMATION
  Report Type: 
  Country: None (occurrence: None)
  Receive Date: 20120330
  Receipt Date: 20120320
  Transmission Date: 20120608
  Serious: Yes (Other)
  Sender: FDA-Public Use
  Company Number: FR-ROCHE-1048851

PATIENT
  Age: 84 Year
  Sex: Female
  Weight: 67 kg

DRUGS (4)
  1. INSULIN [Concomitant]
  2. XELODA [Suspect]
     Indication: PRODUCT USED FOR UNKNOWN INDICATION
  3. METFORMIN HCL [Concomitant]
  4. STABLON [Concomitant]
     Indication: PRODUCT USED FOR UNKNOWN INDICATION

REACTIONS (6)
  - DYSPNOEA [None]
  - PALMAR-PLANTAR ERYTHRODYSAESTHESIA SYNDROME [None]
  - METABOLIC DISORDER [None]
  - ERYTHEMA [None]
  - FATIGUE [None]
  - PRURITUS [None]
